FAERS Safety Report 6437570-8 (Version None)
Quarter: 2009Q4

REPORT INFORMATION
  Report Type: 
  Country: None (occurrence: None)
  Receive Date: 20091106
  Receipt Date: 20090216
  Transmission Date: 20100525
  Serious: Yes (Other)
  Sender: FDA-Public Use
  Company Number: WAES 0902USA04261

PATIENT
  Sex: Female

DRUGS (12)
  1. MEVACOR [Suspect]
     Dosage: 80 MG/HS/PO
     Route: 048
  2. DIOVAN [Concomitant]
  3. TOPROL-XL [Concomitant]
  4. VICODIN [Concomitant]
  5. AMITRIPTYLINE HYDROCHLORIDE [Concomitant]
  6. ASPIRIN [Concomitant]
  7. CALCIUM [Concomitant]
  8. HYDROCHLOROTHIAZIDE [Concomitant]
  9. PREDNISONE TAB [Concomitant]
  10. VITAMIN D [Concomitant]
  11. VITAMIN E [Concomitant]
  12. VITAMINS [Concomitant]

REACTIONS (1)
  - RHABDOMYOLYSIS [None]
